FAERS Safety Report 18242282 (Version 1)
Quarter: 2020Q3

REPORT INFORMATION
  Report Type: Spontaneous
  Country: US (occurrence: US)
  Receive Date: 20200904
  Receipt Date: 20200904
  Transmission Date: 20201103
  Serious: Yes (Hospitalization)
  Sender: FDA-Public Use
  Company Number: None

PATIENT
  Age: 85 Year
  Sex: Male
  Weight: 79 kg

DRUGS (1)
  1. RIVAROXABAN (RIVAROXABAN 15MG TAB) [Suspect]
     Active Substance: RIVAROXABAN
     Indication: ATRIAL FIBRILLATION
     Route: 048
     Dates: start: 20200722, end: 20200723

REACTIONS (7)
  - Fall [None]
  - Haemorrhage [None]
  - Therapy interrupted [None]
  - Skin laceration [None]
  - Haematoma [None]
  - Contusion [None]
  - Eye injury [None]

NARRATIVE: CASE EVENT DATE: 20200723
